FAERS Safety Report 7928731-7 (Version None)
Quarter: 2011Q4

REPORT INFORMATION
  Report Type: 
  Country: None (occurrence: None)
  Receive Date: 20111118
  Receipt Date: 20111114
  Transmission Date: 20120403
  Serious: Yes (Hospitalization, Other)
  Sender: FDA-Public Use
  Company Number: PHHY2011IT94158

PATIENT
  Sex: Male

DRUGS (12)
  1. SINTROM [Suspect]
     Indication: ATRIAL FIBRILLATION
     Dosage: 1 DF
     Route: 048
     Dates: start: 20090101, end: 20110917
  2. ACETYLSALICYLIC ACID SRT [Suspect]
     Dosage: 1 DF, QD
     Route: 048
     Dates: start: 20110917, end: 20111019
  3. LASIX [Concomitant]
     Dosage: 2 DF,
     Route: 048
  4. ENALAPRIL MALEATE [Concomitant]
     Dosage: 10 MG
     Route: 048
  5. TACHIDOL [Concomitant]
     Dosage: 2 DF
     Route: 048
  6. ATARAX [Concomitant]
     Dosage: 2 DF
     Route: 048
  7. MANNITOL [Concomitant]
     Dosage: 160 ML
  8. MEPRAL [Concomitant]
  9. CARVEDILOL [Concomitant]
     Dosage: 6.25 MG
     Route: 048
  10. ENOXAPARIN [Suspect]
     Dosage: 16000 IU,
     Route: 058
     Dates: start: 20110917, end: 20111019
  11. MINIAS [Concomitant]
     Dosage: 10 DRP,
     Route: 048
  12. DECADRON [Concomitant]

REACTIONS (2)
  - DYSARTHRIA [None]
  - CEREBRAL HAEMORRHAGE [None]
